FAERS Safety Report 8421352-1 (Version None)
Quarter: 2012Q2

REPORT INFORMATION
  Report Type: 
  Country: None (occurrence: None)
  Receive Date: 20120608
  Receipt Date: 20120604
  Transmission Date: 20120825
  Serious: Yes (Hospitalization, Other)
  Sender: FDA-Public Use
  Company Number: PHHY2012CA031561

PATIENT
  Sex: Male

DRUGS (3)
  1. DESFERAL [Suspect]
     Indication: MYELODYSPLASTIC SYNDROME
     Dosage: UNK UKN, UNK
     Dates: start: 20060101
  2. DESFERAL [Suspect]
     Dosage: UNK UKN, UNK
     Route: 048
     Dates: start: 20100101
  3. EXJADE [Suspect]
     Indication: MYELODYSPLASTIC SYNDROME
     Dosage: UNK UKN, UNK
     Route: 048

REACTIONS (11)
  - SEPSIS [None]
  - DRUG INEFFECTIVE [None]
  - TERMINAL STATE [None]
  - CARDIAC FAILURE [None]
  - HEPATIC FAILURE [None]
  - INJECTION SITE PAIN [None]
  - NAUSEA [None]
  - IRON OVERLOAD [None]
  - ENCEPHALOPATHY [None]
  - OEDEMA PERIPHERAL [None]
  - DRUG INTOLERANCE [None]
